FAERS Safety Report 14389055 (Version 5)
Quarter: 2018Q4

REPORT INFORMATION
  Report Type: Spontaneous
  Country: US (occurrence: US)
  Receive Date: 20180115
  Receipt Date: 20181002
  Transmission Date: 20190204
  Serious: Yes (Other)
  Sender: FDA-Public Use
  Company Number: US-SA-2017SA227370

PATIENT
  Age: 41 Year
  Sex: Female

DRUGS (14)
  1. NEOSAR [Concomitant]
     Active Substance: CYCLOPHOSPHAMIDE
  2. ADRIAMYCIN [Concomitant]
     Active Substance: DOXORUBICIN HYDROCHLORIDE
  3. DOXIL [DICLOXACILLIN SODIUM MONOHYDRATE] [Concomitant]
  4. CIPROFLOXACIN. [Concomitant]
     Active Substance: CIPROFLOXACIN
     Dosage: UNK
  5. ACETAMINOPHEN;HYDROCODONE [Concomitant]
  6. CYTOXAN [Concomitant]
     Active Substance: CYCLOPHOSPHAMIDE
  7. NEULASTA [Concomitant]
     Active Substance: PEGFILGRASTIM
  8. ONDANSETRON [Concomitant]
     Active Substance: ONDANSETRON
  9. LASIX [Concomitant]
     Active Substance: FUROSEMIDE
  10. ATIVAN [Concomitant]
     Active Substance: LORAZEPAM
     Indication: ANXIETY
     Dosage: 1 MG, QD
  11. TAXOTERE [Suspect]
     Active Substance: DOCETAXEL
     Dosage: UNK UNK, Q3W
     Route: 042
     Dates: start: 20110531, end: 20110531
  12. DEXAMETHASONE. [Concomitant]
     Active Substance: DEXAMETHASONE
  13. PROCHLORPERAZINE. [Concomitant]
     Active Substance: PROCHLORPERAZINE
  14. TAXOTERE [Suspect]
     Active Substance: DOCETAXEL
     Indication: BREAST CANCER
     Dosage: UNK UNK, Q3W
     Route: 042
     Dates: start: 20110214, end: 20110214

REACTIONS (2)
  - Psychological trauma [Unknown]
  - Alopecia [Recovering/Resolving]

NARRATIVE: CASE EVENT DATE: 201111
